FAERS Safety Report 25689444 (Version 1)
Quarter: 2025Q3

REPORT INFORMATION
  Report Type: Spontaneous
  Country: MA (occurrence: MA)
  Receive Date: 20250818
  Receipt Date: 20250818
  Transmission Date: 20251020
  Serious: Yes (Life-Threatening, Hospitalization)
  Sender: INDOCO REMEDIES LIMITED
  Company Number: MA-MLMSERVICE-20250804-PI602719-00043-1

PATIENT
  Age: 52 Year
  Sex: Male

DRUGS (1)
  1. ALLOPURINOL [Suspect]
     Active Substance: ALLOPURINOL
     Indication: Gout
     Dosage: 300 MG PER DAY
     Route: 065

REACTIONS (4)
  - Altered state of consciousness [Recovering/Resolving]
  - Hepatocellular injury [Recovering/Resolving]
  - Drug reaction with eosinophilia and systemic symptoms [Recovering/Resolving]
  - Acute kidney injury [Recovering/Resolving]
